FAERS Safety Report 15508251 (Version 1)
Quarter: 2018Q4

REPORT INFORMATION
  Report Type: Spontaneous
  Country: FR (occurrence: FR)
  Receive Date: 20181016
  Receipt Date: 20181016
  Transmission Date: 20190205
  Serious: Yes (Death)
  Sender: FDA-Public Use
  Company Number: FR-MYLANLABS-2018M1075862

PATIENT
  Age: 50 Year
  Sex: Female
  Weight: 80 kg

DRUGS (10)
  1. TRIFLUCAN [Suspect]
     Active Substance: FLUCONAZOLE
     Indication: ANTIFUNGAL PROPHYLAXIS
     Dosage: 400 MG LE MATIN
     Route: 048
     Dates: start: 20180503, end: 20180506
  2. DOLIPRANE [Concomitant]
     Active Substance: ACETAMINOPHEN
     Indication: PRODUCT USED FOR UNKNOWN INDICATION
     Dosage: 1 G 3 FOIS PAR JOUR ? LA DEMANDE
     Route: 048
     Dates: end: 20180506
  3. PIPERACILLIN AND TAZOBACTAM [Suspect]
     Active Substance: PIPERACILLIN SODIUM\TAZOBACTAM SODIUM
     Indication: FEBRILE BONE MARROW APLASIA
     Dosage: 16 G, QD
     Route: 042
     Dates: start: 20180504, end: 20180506
  4. CYTARABINE SANDOZ [Suspect]
     Active Substance: CYTARABINE
     Indication: ACUTE LEUKAEMIA
     Dosage: 200 MG/M2 (DOSE TOTALE RE?UE 385 MG/M2)
     Route: 042
     Dates: start: 20180504, end: 20180506
  5. CERUBIDINE [Suspect]
     Active Substance: DAUNORUBICIN HYDROCHLORIDE
     Indication: ACUTE LEUKAEMIA
     Dosage: 90 MG/M2 (DOSE TOTALE RE?UE 174 MG/M2)
     Route: 042
     Dates: start: 20180504, end: 20180506
  6. PRIMPERAN [Suspect]
     Active Substance: METOCLOPRAMIDE HYDROCHLORIDE
     Indication: NAUSEA
     Dosage: 10 MG, QD
     Route: 048
     Dates: start: 20180505, end: 20180506
  7. FUROSEMIDE ARROW [Suspect]
     Active Substance: FUROSEMIDE
     Indication: URINE OUTPUT DECREASED
     Dosage: 20 MG, UNK
     Route: 042
     Dates: start: 20180506, end: 20180506
  8. TAVANIC [Suspect]
     Active Substance: LEVOFLOXACIN
     Indication: ANTIBIOTIC PROPHYLAXIS
     Dosage: 1000 MG, QD
     Route: 048
     Dates: end: 20180506
  9. NOXAFIL [Suspect]
     Active Substance: POSACONAZOLE
     Indication: ANTIFUNGAL PROPHYLAXIS
     Dosage: 100 MG, QD
     Route: 048
     Dates: end: 20180506
  10. ZELITREX [Concomitant]
     Active Substance: VALACYCLOVIR HYDROCHLORIDE
     Indication: ANTIVIRAL PROPHYLAXIS
     Dosage: 1000 MG, QD
     Route: 048
     Dates: end: 20180506

REACTIONS (1)
  - Cardio-respiratory arrest [Fatal]

NARRATIVE: CASE EVENT DATE: 20180506
